FAERS Safety Report 7481183-6 (Version None)
Quarter: 2011Q2

REPORT INFORMATION
  Report Type: 
  Country: None (occurrence: None)
  Receive Date: 20110516
  Receipt Date: 20110509
  Transmission Date: 20111010
  Serious: Yes (Death)
  Sender: FDA-Public Use
  Company Number: US-GILEAD-2011-0039098

PATIENT
  Sex: Male

DRUGS (22)
  1. COUMADIN [Concomitant]
     Indication: PULMONARY EMBOLISM
  2. HYDROCHLOROTHIAZIDE [Concomitant]
  3. METHADONE HCL [Concomitant]
  4. NITROGLYCERIN [Concomitant]
  5. CLONAZEPAM [Concomitant]
  6. LEVOTHYROXINE SODIUM [Concomitant]
  7. FAMOTIDINE [Concomitant]
  8. LORTAB [Concomitant]
  9. GABAPENTIN [Concomitant]
  10. METOPROLOL TARTRATE [Concomitant]
  11. PROCRIT [Concomitant]
  12. AMLODIPINE BESYLATE [Concomitant]
  13. METFORMIN HCL [Concomitant]
  14. PLAVIX [Concomitant]
  15. HYDROXYCHLOROQUINE [Concomitant]
  16. COZAAR [Concomitant]
  17. VITAMIN D [Concomitant]
  18. LETAIRIS [Suspect]
     Indication: PULMONARY HYPERTENSION
     Route: 048
     Dates: start: 20110419, end: 20110424
  19. LASIX [Concomitant]
  20. ASPIRIN [Concomitant]
  21. POTASSIUM GLUCONATE TAB [Concomitant]
  22. CHOLESTYRAMINE [Concomitant]

REACTIONS (2)
  - RIGHT VENTRICULAR FAILURE [None]
  - PULMONARY HYPERTENSION [None]
